FAERS Safety Report 4930276-3 (Version None)
Quarter: 2006Q1

REPORT INFORMATION
  Report Type: 
  Country: None (occurrence: None)
  Receive Date: 20060227
  Receipt Date: 20060214
  Transmission Date: 20060701
  Serious: Yes (Hospitalization, Other)
  Sender: FDA-Public Use
  Company Number: 001-0073-990326

PATIENT
  Sex: Male
  Weight: 73.9363 kg

DRUGS (18)
  1. DILANTIN [Suspect]
     Indication: CONVULSION
     Dosage: 400 MG (DAILY), ORAL
     Route: 048
     Dates: start: 19890901
  2. PHENYTOIN SODIUM [Suspect]
     Indication: CONVULSION
  3. BEE VENOM, STANDARD (BEE VENOM, STANDARD) [Concomitant]
  4. ALL OTHER THERAPEUTIC PRODUCTS (ALL OTHER THERAPEUTIC PRODUCTS) [Concomitant]
  5. ZYRTEC [Suspect]
     Indication: MULTIPLE ALLERGIES
     Dosage: 10 MG, ORAL
     Route: 048
     Dates: start: 20000601
  6. ALCOHOL (ETHANOL) [Suspect]
     Indication: ILL-DEFINED DISORDER
     Dosage: ORAL
     Route: 048
  7. DILANTIN [Suspect]
     Indication: CONVULSION
     Dosage: (100 MG,2 IN 1 D), ORAL
     Route: 048
  8. CALCIUM WITH VITAMIN D (CALCIUM PHOSPHATE, CALCIUM SODIUM LACTATE,ERGO [Suspect]
     Indication: ILL-DEFINED DISORDER
  9. ASPIRIN [Concomitant]
  10. MULITIVITAMINS (ERGOCALCIFEROL, ASCORBIC ACID, FOLIC ACID, THIAMINE HY [Concomitant]
  11. VITMAIN E (TOCOPHEROL) [Concomitant]
  12. VITAMIN B (VITAMIN B) [Concomitant]
  13. ACETAMINOPHEN [Concomitant]
  14. ALKA-SELTZER PLUS (ACETYLSALICYLIC ACID, CHLORPHENAMINE MALEATE, PHENY [Concomitant]
  15. ALBUTEROL [Concomitant]
  16. BENADRYL [Concomitant]
  17. DEPAKOTE [Concomitant]
  18. LORATADINE [Concomitant]

REACTIONS (30)
  - ABDOMINAL STRANGULATED HERNIA [None]
  - ALCOHOL USE [None]
  - ANGIONEUROTIC OEDEMA [None]
  - ANTICONVULSANT DRUG LEVEL DECREASED [None]
  - ANTICONVULSANT DRUG LEVEL INCREASED [None]
  - AURA [None]
  - BALANCE DISORDER [None]
  - CONDITION AGGRAVATED [None]
  - CONVULSION [None]
  - DIZZINESS [None]
  - DRUG INTERACTION [None]
  - DYSPHAGIA [None]
  - EYE ROLLING [None]
  - HYPERSENSITIVITY [None]
  - HYPOGLYCAEMIA [None]
  - INCOHERENT [None]
  - INCORRECT DOSE ADMINISTERED [None]
  - INFLUENZA LIKE ILLNESS [None]
  - LOSS OF CONSCIOUSNESS [None]
  - MALAISE [None]
  - MUSCULOSKELETAL STIFFNESS [None]
  - NODULE [None]
  - PETIT MAL EPILEPSY [None]
  - PYREXIA [None]
  - RASH [None]
  - ROAD TRAFFIC ACCIDENT [None]
  - THERAPEUTIC RESPONSE UNEXPECTED WITH DRUG SUBSTITUTION [None]
  - URTICARIA [None]
  - VERTIGO [None]
  - VOMITING [None]
